FAERS Safety Report 6221312-5 (Version None)
Quarter: 2009Q2

REPORT INFORMATION
  Report Type: 
  Country: None (occurrence: None)
  Receive Date: 20090610
  Receipt Date: 20090601
  Transmission Date: 20091009
  Serious: Yes (Other)
  Sender: FDA-Public Use
  Company Number: DE-BRISTOL-MYERS SQUIBB COMPANY-14650600

PATIENT

DRUGS (4)
  1. EFAVIRENZ [Suspect]
     Indication: HIV INFECTION
  2. STAVUDINE [Suspect]
     Indication: HIV INFECTION
     Dates: start: 19990601
  3. DIDANOSINE [Suspect]
     Indication: HIV INFECTION
     Dates: start: 19990601
  4. NELFINAVIR [Suspect]
     Indication: HIV INFECTION
     Dates: start: 19990601

REACTIONS (2)
  - DRUG RESISTANCE [None]
  - HUMAN IMMUNODEFICIENCY VIRUS TRANSMISSION [None]
